FAERS Safety Report 16522055 (Version 2)
Quarter: 2019Q3

REPORT INFORMATION
  Report Type: Spontaneous
  Country: US (occurrence: US)
  Receive Date: 20190702
  Receipt Date: 20190703
  Transmission Date: 20191004
  Serious: Yes (Hospitalization)
  Sender: FDA-Public Use
  Company Number: US-ADAAP-201900173

PATIENT
  Age: 55 Year
  Sex: Female

DRUGS (1)
  1. LUTATHERA [Suspect]
     Active Substance: LUTETIUM OXODOTREOTIDE LU-177
     Indication: CARCINOID TUMOUR OF THE SMALL BOWEL
     Dosage: SINGLE DOSE
     Route: 065

REACTIONS (2)
  - Acute kidney injury [Recovered/Resolved]
  - Tumour lysis syndrome [Unknown]
